FAERS Safety Report 14291604 (Version 3)
Quarter: 2018Q1

REPORT INFORMATION
  Report Type: Spontaneous
  Country: US (occurrence: US)
  Receive Date: 20171215
  Receipt Date: 20180126
  Transmission Date: 20180509
  Serious: Yes (Hospitalization, Other)
  Sender: FDA-Public Use
  Company Number: US-PFIZER INC-2017530756

PATIENT
  Age: 56 Year
  Sex: Male
  Weight: 102.6 kg

DRUGS (30)
  1. BUMETANIDE. [Concomitant]
     Active Substance: BUMETANIDE
     Indication: FLUID RETENTION
     Dosage: 2 MG, TWO TIMES A DAY
     Dates: start: 201705
  2. ELIQUIS [Concomitant]
     Active Substance: APIXABAN
     Dosage: UNK
     Dates: start: 2017
  3. FISH OIL [Concomitant]
     Active Substance: FISH OIL
     Dosage: UNK
     Dates: start: 2010
  4. FOLIC ACID. [Concomitant]
     Active Substance: FOLIC ACID
     Dosage: 1 MG, ONE TIME A DAY
     Dates: start: 2002
  5. ATORVASTATIN [Concomitant]
     Active Substance: ATORVASTATIN
     Dosage: UNK
     Dates: start: 2012
  6. VITAMIN B6 [Concomitant]
     Active Substance: PYRIDOXINE HYDROCHLORIDE
     Dosage: UNK
     Dates: start: 2015
  7. LANTUS [Concomitant]
     Active Substance: INSULIN GLARGINE
     Indication: BLOOD GLUCOSE INCREASED
     Dosage: 70 IU, ONE TIME A DAY
     Dates: start: 2009
  8. ATORVASTATIN [Concomitant]
     Active Substance: ATORVASTATIN
     Indication: BLOOD CHOLESTEROL ABNORMAL
     Dosage: 20 MG, ONE TIME A DAY IN THE EVENING
     Dates: start: 2016
  9. ELIQUIS [Concomitant]
     Active Substance: APIXABAN
     Indication: CARDIAC DISORDER
     Dosage: 2.5 MG, TWO TIMES A DAY
     Dates: start: 201610
  10. LORATADINE. [Concomitant]
     Active Substance: LORATADINE
     Indication: SINUSITIS
     Dosage: 10 MG, ONE TIME A DAY
     Dates: start: 2016
  11. LASIX [Concomitant]
     Active Substance: FUROSEMIDE
     Indication: FLUID RETENTION
     Dosage: UNK
     Dates: start: 2005, end: 2017
  12. FISH OIL [Concomitant]
     Active Substance: FISH OIL
     Indication: CARDIAC DISORDER
     Dosage: 1000 MG, TWO TIMES A DAY
     Dates: start: 2012
  13. VITAMIN B6 [Concomitant]
     Active Substance: PYRIDOXINE HYDROCHLORIDE
     Dosage: 100 MG, ONE TIME A DAY
  14. LANTUS [Concomitant]
     Active Substance: INSULIN GLARGINE
     Dosage: UNK
     Dates: start: 2005
  15. FOLIC ACID. [Concomitant]
     Active Substance: FOLIC ACID
     Dosage: UNK
     Dates: start: 2000
  16. FERREX [Concomitant]
     Active Substance: FERRIC POLYSACCHARIDE COMPLEX
     Indication: BLOOD DISORDER
     Dosage: 150 MG, ONE TIME A DAY
     Dates: start: 2016
  17. LORATADINE. [Concomitant]
     Active Substance: LORATADINE
     Indication: HYPERSENSITIVITY
     Dosage: UNK
     Dates: start: 2017
  18. VITAMIN B1 [Concomitant]
     Active Substance: THIAMINE HYDROCHLORIDE
     Dosage: UNK
     Dates: start: 2016
  19. LYRICA [Suspect]
     Active Substance: PREGABALIN
     Indication: DIABETIC NEPHROPATHY
     Dosage: 100 MG, TWO TIMES A DAY
     Dates: start: 2013
  20. ALLOPURINOL. [Concomitant]
     Active Substance: ALLOPURINOL
     Dosage: UNK
     Dates: start: 2010
  21. CARVEDILOL. [Concomitant]
     Active Substance: CARVEDILOL
     Dosage: UNK
     Dates: start: 2016
  22. LYRICA [Suspect]
     Active Substance: PREGABALIN
     Indication: NEURALGIA
     Dosage: 150 MG, TWO TIMES A DAY
  23. FERREX [Concomitant]
     Active Substance: FERRIC POLYSACCHARIDE COMPLEX
     Dosage: UNK
     Dates: start: 2015
  24. FAMOTIDINE. [Concomitant]
     Active Substance: FAMOTIDINE
     Indication: ABDOMINAL DISCOMFORT
     Dosage: 40 MG, TWO TIMES A DAY
     Dates: start: 2016
  25. FAMOTIDINE. [Concomitant]
     Active Substance: FAMOTIDINE
     Dosage: UNK
     Dates: start: 2017
  26. NOVOLOG [Concomitant]
     Active Substance: INSULIN ASPART
     Indication: BLOOD GLUCOSE ABNORMAL
     Dosage: 30 IU BEFORE MEALS, EATS 1 TO 2 TIMES A DAY PLUS SLIDING SCALE
     Dates: start: 2009
  27. CARVEDILOL. [Concomitant]
     Active Substance: CARVEDILOL
     Indication: CARDIAC DISORDER
     Dosage: 3.125 MG, TWO TIMES A DAY
     Dates: start: 2015
  28. VITAMIN B1 [Concomitant]
     Active Substance: THIAMINE HYDROCHLORIDE
     Dosage: 100 MG, ONE TIME A DAY
  29. NOVOLOG [Concomitant]
     Active Substance: INSULIN ASPART
     Dosage: UNK
     Dates: start: 2005
  30. ALLOPURINOL. [Concomitant]
     Active Substance: ALLOPURINOL
     Indication: GOUT
     Dosage: 100 MG, ONE TIME A DAY
     Dates: start: 2012

REACTIONS (8)
  - Peripheral swelling [Recovered/Resolved]
  - Sensory loss [Recovered/Resolved]
  - Peroneal nerve palsy [Unknown]
  - Fluid retention [Recovered/Resolved]
  - Fall [Not Recovered/Not Resolved]
  - Arthritis infective [Recovered/Resolved]
  - Post procedural infection [Recovered/Resolved]
  - Dyspnoea [Recovered/Resolved]

NARRATIVE: CASE EVENT DATE: 201402
